FAERS Safety Report 13754729 (Version 7)
Quarter: 2019Q4

REPORT INFORMATION
  Report Type: Report from Study
  Country: BR (occurrence: BR)
  Receive Date: 20170714
  Receipt Date: 20191217
  Transmission Date: 20200122
  Serious: Yes (Hospitalization, Other)
  Sender: FDA-Public Use
  Company Number: BR-TAKEDA-2017TUS014651

PATIENT
  Age: 36 Year
  Sex: Female

DRUGS (1)
  1. VEDOLIZUMAB [Suspect]
     Active Substance: VEDOLIZUMAB
     Indication: CROHN^S DISEASE
     Dosage: 300 MILLIGRAM
     Route: 042
     Dates: start: 20161207

REACTIONS (14)
  - Somnolence [Unknown]
  - Intestinal resection [Unknown]
  - Diarrhoea [Unknown]
  - Poor quality sleep [Unknown]
  - Wound dehiscence [Unknown]
  - Anal fistula [Not Recovered/Not Resolved]
  - Suture rupture [Recovered/Resolved]
  - Emotional distress [Unknown]
  - Abdominal hernia [Recovered/Resolved]
  - Intestinal obstruction [Recovered/Resolved]
  - Weight decreased [Unknown]
  - Gastrointestinal infection [Recovered/Resolved]
  - Off label use [Unknown]
  - Decreased appetite [Unknown]

NARRATIVE: CASE EVENT DATE: 20170530
